FAERS Safety Report 5225966-1 (Version None)
Quarter: 2007Q1

REPORT INFORMATION
  Report Type: 
  Country: None (occurrence: None)
  Receive Date: 20070129
  Receipt Date: 20070115
  Transmission Date: 20070707
  Serious: Yes (Hospitalization)
  Sender: FDA-Public Use
  Company Number: 151938ISR

PATIENT
  Age: 65 Year
  Sex: Female

DRUGS (2)
  1. PHENYTOIN [Suspect]
     Indication: EPILEPSY
     Dosage: (300 MG); ORAL
     Route: 048
     Dates: start: 20061011, end: 20061124
  2. VALPROIC ACID [Suspect]
     Indication: MOOD ALTERED
     Dosage: 900 MG (900 MG, 1 IN 1 D) ORAL
     Route: 048

REACTIONS (1)
  - STAPHYLOCOCCAL SCALDED SKIN SYNDROME [None]
